FAERS Safety Report 12457060 (Version 2)
Quarter: 2016Q3

REPORT INFORMATION
  Report Type: Spontaneous
  Country: CH (occurrence: CH)
  Receive Date: 20160610
  Receipt Date: 20160706
  Transmission Date: 20161109
  Serious: Yes (Other)
  Sender: FDA-Public Use
  Company Number: PHHY2016CH078265

PATIENT
  Sex: Female

DRUGS (1)
  1. AZITHROMYCIN SANDOZ [Suspect]
     Active Substance: AZITHROMYCIN ANHYDROUS
     Indication: COUGH
     Dosage: 500 MG, QD
     Route: 048
     Dates: start: 20160424, end: 20160426

REACTIONS (3)
  - Cerebrovascular accident [Recovering/Resolving]
  - Ageusia [Recovering/Resolving]
  - Hypoaesthesia [Recovering/Resolving]

NARRATIVE: CASE EVENT DATE: 20160424
